FAERS Safety Report 9549228 (Version 1)
Quarter: 2013Q3

REPORT INFORMATION
  Report Type: Spontaneous
  Country: US (occurrence: None)
  Receive Date: 20130923
  Receipt Date: 20130923
  Transmission Date: 20140515
  Serious: Yes (Other)
  Sender: FDA-Public Use
  Company Number: None

PATIENT
  Age: 40 Year
  Sex: Female
  Weight: 57.61 kg

DRUGS (1)
  1. TERBINAFINE [Suspect]
     Route: 048
     Dates: start: 20130731, end: 20130828

REACTIONS (2)
  - Dysgeusia [None]
  - Dysgeusia [None]
